FAERS Safety Report 14161320 (Version 11)
Quarter: 2019Q1

REPORT INFORMATION
  Report Type: Report from Study
  Country: ZA (occurrence: ZA)
  Receive Date: 20171106
  Receipt Date: 20190118
  Transmission Date: 20190417
  Serious: Yes (Hospitalization, Other)
  Sender: FDA-Public Use
  Company Number: ZA-BRISTOL-MYERS SQUIBB COMPANY-BMS-2017-096494

PATIENT
  Age: 49 Year
  Sex: Female

DRUGS (2)
  1. ABATACEPT [Suspect]
     Active Substance: ABATACEPT
     Indication: RHEUMATOID ARTHRITIS
     Dosage: 750 MG, QMO
     Route: 042
     Dates: start: 20170525, end: 20180412
  2. ABATACEPT [Suspect]
     Active Substance: ABATACEPT
     Indication: RHEUMATOID ARTHRITIS
     Dosage: 125 MG, QWK
     Route: 058
     Dates: start: 20180927

REACTIONS (4)
  - Arthropathy [Recovered/Resolved]
  - Hip fracture [Recovered/Resolved]
  - Product dose omission [Unknown]
  - Joint dislocation [Recovered/Resolved]

NARRATIVE: CASE EVENT DATE: 20180511
